FAERS Safety Report 6652176-3 (Version None)
Quarter: 2010Q1

REPORT INFORMATION
  Report Type: 
  Country: None (occurrence: None)
  Receive Date: 20100325
  Receipt Date: 20100310
  Transmission Date: 20100710
  Serious: Yes (Hospitalization)
  Sender: FDA-Public Use
  Company Number: JP-AMGEN-US399579

PATIENT
  Sex: Female
  Weight: 55 kg

DRUGS (4)
  1. ENBREL [Suspect]
     Indication: RHEUMATOID ARTHRITIS
     Route: 058
     Dates: start: 20080912, end: 20090528
  2. ENBREL [Suspect]
     Route: 058
     Dates: start: 20090619, end: 20100301
  3. LOXOPROFEN [Suspect]
     Indication: RHEUMATOID ARTHRITIS
     Dosage: UNKNOWN
     Route: 048
  4. MUCOSTA [Concomitant]
     Dosage: UNKNOWN
     Route: 048

REACTIONS (1)
  - CARPAL TUNNEL SYNDROME [None]
